FAERS Safety Report 7743408-9 (Version None)
Quarter: 2011Q3

REPORT INFORMATION
  Report Type: 
  Country: None (occurrence: None)
  Receive Date: 20110906
  Receipt Date: 20110826
  Transmission Date: 20111222
  Serious: Yes (Other)
  Sender: FDA-Public Use
  Company Number: 2011SP031783

PATIENT
  Age: 43 Year
  Sex: Female

DRUGS (5)
  1. SAPHRIS [Suspect]
     Indication: PANIC DISORDER
     Dosage: 5 MG;HS;PO
     Route: 048
     Dates: start: 20110526, end: 20110610
  2. SAPHRIS [Suspect]
     Indication: AFFECTIVE DISORDER
     Dosage: 5 MG;HS;PO
     Route: 048
     Dates: start: 20110526, end: 20110610
  3. KLONOPIN [Concomitant]
  4. PROZAC [Concomitant]
  5. TRAZODONE HCL [Concomitant]

REACTIONS (12)
  - WEIGHT DECREASED [None]
  - AGEUSIA [None]
  - INSOMNIA [None]
  - DECREASED APPETITE [None]
  - SPEECH DISORDER [None]
  - AMNESIA [None]
  - INCONTINENCE [None]
  - TOOTHACHE [None]
  - VISION BLURRED [None]
  - HYPOAESTHESIA ORAL [None]
  - APHAGIA [None]
  - DISTURBANCE IN ATTENTION [None]
